FAERS Safety Report 24653293 (Version 1)
Quarter: 2024Q4

REPORT INFORMATION
  Report Type: Spontaneous
  Country: DE (occurrence: DE)
  Receive Date: 20241122
  Receipt Date: 20241122
  Transmission Date: 20250115
  Serious: Yes (Other)
  Sender: SANOFI AVENTIS
  Company Number: DE-SANOFI-02307120

PATIENT
  Age: 30 Year
  Sex: Female

DRUGS (3)
  1. DUPIXENT [Suspect]
     Active Substance: DUPILUMAB
     Indication: Chronic rhinosinusitis with nasal polyps
     Dosage: 1 DF
     Route: 058
     Dates: start: 20241107, end: 20241107
  2. SYMBICORT [Concomitant]
     Active Substance: BUDESONIDE\FORMOTEROL FUMARATE DIHYDRATE
     Dosage: UNK METERED DOSE INHALER
  3. MOMETASONE [Concomitant]
     Active Substance: MOMETASONE
     Dosage: UNK
     Route: 061

REACTIONS (2)
  - Dermatitis allergic [Unknown]
  - Anaphylactic reaction [Unknown]

NARRATIVE: CASE EVENT DATE: 20241107
